FAERS Safety Report 11851727 (Version 1)
Quarter: 2015Q4

REPORT INFORMATION
  Report Type: Spontaneous
  Country: US (occurrence: US)
  Receive Date: 20151218
  Receipt Date: 20151218
  Transmission Date: 20160305
  Serious: Yes (Hospitalization, Other)
  Sender: FDA-Public Use
  Company Number: US-APOTEX-2015AP013997

PATIENT

DRUGS (3)
  1. LAMOTRIGINE. [Suspect]
     Active Substance: LAMOTRIGINE
     Indication: BIPOLAR DISORDER
     Dosage: 200 MG, Q.H.S.
     Route: 064
  2. LAMOTRIGINE. [Suspect]
     Active Substance: LAMOTRIGINE
     Dosage: 225 MG, DAILY
     Route: 064
  3. DIPHENHYDRAMINE. [Suspect]
     Active Substance: DIPHENHYDRAMINE
     Indication: PRODUCT USED FOR UNKNOWN INDICATION
     Route: 064

REACTIONS (6)
  - Hypotonia neonatal [Recovered/Resolved]
  - Feeding disorder of infancy or early childhood [Recovered/Resolved]
  - Jaundice neonatal [Recovered/Resolved]
  - Dehydration [Recovered/Resolved]
  - Exposure during breast feeding [Recovered/Resolved]
  - Foetal exposure during pregnancy [Recovered/Resolved]
